FAERS Safety Report 23023638 (Version 6)
Quarter: 2023Q4

REPORT INFORMATION
  Report Type: Spontaneous
  Country: US (occurrence: US)
  Receive Date: 20231003
  Receipt Date: 20231120
  Transmission Date: 20240109
  Serious: Yes (Other)
  Sender: FDA-Public Use
  Company Number: US-PFIZER INC-PV202300162645

PATIENT
  Age: 54 Year
  Sex: Female

DRUGS (1)
  1. IBRANCE [Suspect]
     Active Substance: PALBOCICLIB
     Dosage: 125 MG (21 DAY COURSE)

REACTIONS (9)
  - Pulmonary oedema [Unknown]
  - Nausea [Unknown]
  - Platelet count decreased [Unknown]
  - White blood cell count decreased [Unknown]
  - Influenza [Unknown]
  - Epistaxis [Unknown]
  - Pain [Unknown]
  - Fatigue [Unknown]
  - Laboratory test abnormal [Unknown]
